FAERS Safety Report 10778424 (Version 1)
Quarter: 2015Q1

REPORT INFORMATION
  Report Type: Report from Study
  Country: HR (occurrence: HR)
  Receive Date: 20150209
  Receipt Date: 20150209
  Transmission Date: 20150721
  Serious: Yes (Other)
  Sender: FDA-Public Use
  Company Number: HR-MYLANLABS-2015M1003331

PATIENT

DRUGS (1)
  1. SUNITINIB [Suspect]
     Active Substance: SUNITINIB
     Indication: RENAL CELL CARCINOMA
     Dosage: 50MG PER DAY
     Route: 065
     Dates: start: 201304

REACTIONS (10)
  - Hyperthyroidism [Unknown]
  - Constipation [Unknown]
  - Hand-foot-and-mouth disease [Unknown]
  - Hypertension [Unknown]
  - Decreased appetite [Unknown]
  - Paraesthesia [Unknown]
  - Hypothyroidism [Unknown]
  - Oesophagitis [Unknown]
  - Stomatitis [Unknown]
  - Vomiting [Unknown]
